FAERS Safety Report 5612518-4 (Version None)
Quarter: 2008Q1

REPORT INFORMATION
  Report Type: 
  Country: None (occurrence: None)
  Receive Date: 20080201
  Receipt Date: 20080201
  Transmission Date: 20080703
  Serious: Yes (Hospitalization, Other)
  Sender: FDA-Public Use
  Company Number: None

PATIENT
  Sex: Male

DRUGS (2)
  1. ZANAFLEX [Suspect]
     Indication: PAIN
     Dosage: 6MG -1.5 TABLETS-  ONCE DAILY  PO
     Route: 048
     Dates: start: 20071114, end: 20071221
  2. LEVAQUIN [Suspect]
     Indication: INFECTION
     Dosage: 750MG ONCE DAILY PO
     Route: 048
     Dates: start: 20071221, end: 20071231

REACTIONS (1)
  - BLOOD PRESSURE DECREASED [None]
